FAERS Safety Report 8837779 (Version 3)
Quarter: 2012Q4

REPORT INFORMATION
  Report Type: 
  Country: GB (occurrence: GB)
  Receive Date: 20121012
  Receipt Date: 20121102
  Transmission Date: 20130627
  Serious: Yes (Hospitalization, Other)
  Sender: FDA-Public Use
  Company Number: GB-009507513-1209GBR007004

PATIENT
  Age: 22 Year
  Sex: Female
  Weight: 52 kg

DRUGS (11)
  1. NEXPLANON [Suspect]
     Indication: CONTRACEPTION
     Dosage: UNK
     Route: 059
     Dates: start: 20110930, end: 20120914
  2. FLUOXETINE [Concomitant]
     Indication: DEPRESSED MOOD
     Dosage: 20 mg, bid
     Dates: start: 20120124
  3. AMOXICILLIN [Concomitant]
     Indication: LOWER RESPIRATORY TRACT INFECTION
     Dosage: 500 mg, tid
     Dates: start: 20120810, end: 20120815
  4. NITROFURANTOIN [Concomitant]
     Indication: URINARY TRACT INFECTION
     Dosage: 50 mg, qd
     Dates: start: 20120406, end: 20120412
  5. AMITRIPTYLINE HYDROCHLORIDE [Concomitant]
     Indication: MIGRAINE
     Dosage: 10 mg, qd
     Dates: start: 20120316
  6. NAPROXEN [Concomitant]
     Dosage: 500 mg, bid
     Dates: start: 20120222
  7. ACETAMINOPHEN [Concomitant]
     Indication: MIGRAINE
     Dosage: 500 mg, prn
     Dates: start: 20120222
  8. SUMATRIPTAN [Concomitant]
     Indication: MIGRAINE
     Dosage: 68 mg, once for three years
     Dates: start: 20120222
  9. ERYTHROMYCIN [Concomitant]
     Indication: ACNE
     Dosage: 250 mg, bid
  10. BUCCASTEM [Concomitant]
     Indication: DIZZINESS
     Dosage: UNK
  11. BUCCASTEM [Concomitant]
     Indication: NAUSEA

REACTIONS (5)
  - Emotional disorder [Unknown]
  - Abortion spontaneous [Recovered/Resolved]
  - Pyelonephritis [Unknown]
  - Unintended pregnancy [Unknown]
  - Metrorrhagia [Unknown]
